FAERS Safety Report 17628960 (Version 1)
Quarter: 2020Q2

REPORT INFORMATION
  Report Type: Spontaneous
  Country: FR (occurrence: FR)
  Receive Date: 20200406
  Receipt Date: 20200406
  Transmission Date: 20200713
  Serious: Yes (Other)
  Sender: FDA-Public Use
  Company Number: FR-TEVA-2020-FR-1218674

PATIENT
  Age: 7 Year
  Sex: Male
  Weight: 26 kg

DRUGS (1)
  1. AMOXICILLINE [Suspect]
     Active Substance: AMOXICILLIN
     Indication: TONSILLITIS STREPTOCOCCAL
     Route: 048
     Dates: start: 20200215, end: 20200219

REACTIONS (2)
  - Face oedema [Recovered/Resolved]
  - Rash erythematous [Recovered/Resolved]

NARRATIVE: CASE EVENT DATE: 20200219
